FAERS Safety Report 13525840 (Version 1)
Quarter: 2017Q2

REPORT INFORMATION
  Report Type: Spontaneous
  Country: NL (occurrence: NL)
  Receive Date: 20170509
  Receipt Date: 20170509
  Transmission Date: 20170830
  Serious: Yes (Hospitalization)
  Sender: FDA-Public Use
  Company Number: NL-SUN PHARMACEUTICAL INDUSTRIES LTD-2016R1-112772

PATIENT
  Age: 38 Year
  Sex: Male

DRUGS (2)
  1. NORTRIPTYLINE [Suspect]
     Active Substance: NORTRIPTYLINE
     Indication: PRODUCT USED FOR UNKNOWN INDICATION
     Dosage: 1375 MG, SINGLE
     Route: 065
  2. ZOLPIDEM [Suspect]
     Active Substance: ZOLPIDEM\ZOLPIDEM TARTRATE
     Indication: PRODUCT USED FOR UNKNOWN INDICATION
     Dosage: 100 MG, SINGLE
     Route: 065

REACTIONS (12)
  - Hypotension [Recovered/Resolved]
  - Somnolence [Recovered/Resolved]
  - Hyperthermia [Recovering/Resolving]
  - Obstructive airways disorder [Recovered/Resolved]
  - Ventricular arrhythmia [Recovering/Resolving]
  - Overdose [Recovered/Resolved]
  - Hepatotoxicity [Recovered/Resolved]
  - Amnesia [Recovering/Resolving]
  - Seizure [Recovering/Resolving]
  - Suicide attempt [Recovered/Resolved]
  - Toxicity to various agents [Recovering/Resolving]
  - Tachycardia [Recovering/Resolving]
